FAERS Safety Report 4421340-6 (Version None)
Quarter: 2004Q3

REPORT INFORMATION
  Report Type: 
  Country: None (occurrence: None)
  Receive Date: 20040706
  Receipt Date: 20040421
  Transmission Date: 20050211
  Serious: No
  Sender: FDA-Public Use
  Company Number: 236133

PATIENT
  Age: 26 Year
  Sex: Female

DRUGS (2)
  1. NOVOLOG [Suspect]
     Indication: DIABETES MELLITUS
     Dosage: SUBCUTAN.-PUMP
     Route: 058
     Dates: end: 20040301
  2. INSULIN PUMP (TYPE UNSPECIFIED) [Concomitant]

REACTIONS (1)
  - BLOOD GLUCOSE INCREASED [None]
